FAERS Safety Report 5159064-2 (Version None)
Quarter: 2006Q4

REPORT INFORMATION
  Report Type: 
  Country: None (occurrence: None)
  Receive Date: 20061117
  Receipt Date: 20061104
  Transmission Date: 20070319
  Serious: Yes (Other)
  Sender: FDA-Public Use
  Company Number: 2006136218

PATIENT
  Age: 32 Year
  Sex: Female
  Weight: 43.0917 kg

DRUGS (5)
  1. LYRICA [Suspect]
     Indication: NEURALGIA
     Dosage: 150 MG (75 MG, 2 IN 1 D)
     Dates: start: 20060101
  2. ORAMORPH SR [Concomitant]
  3. XANAX [Concomitant]
  4. GABITRIL [Concomitant]
  5. PHENERGAN [Concomitant]

REACTIONS (3)
  - ASTHENIA [None]
  - SOMNOLENCE [None]
  - TACHYCARDIA [None]
